FAERS Safety Report 20135551 (Version 1)
Quarter: 2021Q4

REPORT INFORMATION
  Report Type: Spontaneous
  Country: CA (occurrence: CA)
  Receive Date: 20211201
  Receipt Date: 20211201
  Transmission Date: 20220303
  Serious: Yes (Life-Threatening, Hospitalization)
  Sender: FDA-Public Use
  Company Number: CA-TEVA-2021-CA-1982974

PATIENT
  Age: 13 Year
  Sex: Male
  Weight: 56 kg

DRUGS (5)
  1. DOXORUBICIN HYDROCHLORIDE [Suspect]
     Active Substance: DOXORUBICIN HYDROCHLORIDE
     Route: 065
  2. VINCRISTINE SULFATE [Suspect]
     Active Substance: VINCRISTINE SULFATE
     Route: 065
  3. CYCLOPHOSPHAMIDE [Suspect]
     Active Substance: CYCLOPHOSPHAMIDE
     Route: 065
  4. CYTARABINE [Suspect]
     Active Substance: CYTARABINE
     Route: 065
  5. THIOGUANINE [Suspect]
     Active Substance: THIOGUANINE
     Route: 065

REACTIONS (1)
  - Febrile neutropenia [Recovering/Resolving]
